FAERS Safety Report 9752126 (Version 1)
Quarter: 2013Q4

REPORT INFORMATION
  Report Type: Spontaneous
  Country: US (occurrence: None)
  Receive Date: 20131212
  Receipt Date: 20131212
  Transmission Date: 20140711
  Serious: No
  Sender: FDA-Public Use
  Company Number: None

PATIENT
  Age: 20 Year
  Sex: Female

DRUGS (2)
  1. MAKENA [Suspect]
     Indication: PREGNANCY
     Route: 030
     Dates: start: 201309, end: 20131211
  2. MAKENA [Suspect]
     Indication: POSTPONEMENT OF PRETERM DELIVERY
     Route: 030
     Dates: start: 201309, end: 20131211

REACTIONS (2)
  - Injection site reaction [None]
  - Maternal exposure during pregnancy [None]
